FAERS Safety Report 7709019-6 (Version None)
Quarter: 2011Q3

REPORT INFORMATION
  Report Type: 
  Country: None (occurrence: None)
  Receive Date: 20110825
  Receipt Date: 20110817
  Transmission Date: 20111222
  Serious: Yes (Hospitalization)
  Sender: FDA-Public Use
  Company Number: US-NOVOPROD-327722

PATIENT
  Sex: Male
  Weight: 66.7 kg

DRUGS (8)
  1. ASPIRIN [Concomitant]
     Indication: PROPHYLAXIS
     Dosage: 81 MG, QD
     Dates: start: 20060101
  2. LIPITOR [Concomitant]
     Indication: LIPIDS
     Dosage: 40 MG, QD
     Dates: start: 20090501
  3. NOVORAPID FLEXPEN [Suspect]
     Dosage: 32 IU, QD
     Route: 058
     Dates: start: 20101005, end: 20110503
  4. NOVORAPID FLEXPEN [Suspect]
     Indication: TYPE 1 DIABETES MELLITUS
     Dosage: 30 U, QD (MAIN TRIAL)
     Route: 058
     Dates: start: 20090928, end: 20101004
  5. INSULATARD FLEXPEN HM(GE) [Suspect]
     Indication: TYPE 1 DIABETES MELLITUS
     Dosage: 18 U, QD
     Route: 058
     Dates: start: 20100927, end: 20101004
  6. ELDERBERRY [Concomitant]
     Indication: MEDICAL DIET
     Dosage: 1000 MG, QD
     Dates: start: 20091003
  7. IDEG FLEXPEN [Suspect]
     Indication: TYPE 1 DIABETES MELLITUS
     Dosage: 18 IU, QD
     Route: 058
     Dates: start: 20090928, end: 20100926
  8. IDEG FLEXPEN [Suspect]
     Dosage: 20 IU, QD
     Route: 058
     Dates: start: 20101005, end: 20110503

REACTIONS (4)
  - COMA [None]
  - JOINT INJURY [None]
  - ROAD TRAFFIC ACCIDENT [None]
  - GLIOBLASTOMA [None]
